FAERS Safety Report 14119529 (Version 1)
Quarter: 2017Q4

REPORT INFORMATION
  Report Type: Spontaneous
  Country: GB (occurrence: GB)
  Receive Date: 20171024
  Receipt Date: 20171024
  Transmission Date: 20180321
  Serious: Yes (Other)
  Sender: FDA-Public Use
  Company Number: GB-ACCORD-060024

PATIENT
  Age: 17 Year
  Sex: Female
  Weight: 19 kg

DRUGS (5)
  1. STEMETIL [Concomitant]
     Active Substance: PROCHLORPERAZINE MALEATE
     Dosage: 1 TABLET 3 TIMES A DAY
     Dates: start: 20170913
  2. CODEINE PHOSPHATE/PARACETAMOL [Concomitant]
     Dosage: STRENGTH: 30 MG/500 MG
     Dates: start: 20170913
  3. SERTRALINE [Suspect]
     Active Substance: SERTRALINE HYDROCHLORIDE
     Indication: PARONYCHIA
     Route: 048
  4. NAPROXEN. [Concomitant]
     Active Substance: NAPROXEN
     Dates: start: 20170913
  5. ZOLMITRIPTAN. [Concomitant]
     Active Substance: ZOLMITRIPTAN
     Indication: MIGRAINE
     Dosage: 1 TABLET AT START OF MIGRAINE
     Route: 048
     Dates: start: 20170227

REACTIONS (3)
  - Syncope [Recovered/Resolved]
  - Monoplegia [Unknown]
  - Off label use [Unknown]

NARRATIVE: CASE EVENT DATE: 20170203
